FAERS Safety Report 10079412 (Version 1)
Quarter: 2014Q2

REPORT INFORMATION
  Report Type: Spontaneous
  Country: US (occurrence: None)
  Receive Date: 20140414
  Receipt Date: 20140414
  Transmission Date: 20141212
  Serious: Yes (Disabling)
  Sender: FDA-Public Use
  Company Number: None

PATIENT
  Age: 68 Year
  Sex: Male
  Weight: 90.72 kg

DRUGS (2)
  1. SYNTHROID 50 MCG [Suspect]
     Indication: THYROIDECTOMY
     Dosage: 1 PILL ONCE A DAY ONCE DAILY TAKEN BY MOUTH
     Route: 048
     Dates: start: 20140401, end: 20140401
  2. THYROID [Suspect]
     Indication: THYROIDECTOMY
     Dosage: 1 A DAY ONCE DAILY TAKEN BY MOUTH
     Route: 048
     Dates: start: 20140409, end: 20140411

REACTIONS (2)
  - Dyspnoea [None]
  - Nausea [None]
